FAERS Safety Report 24089403 (Version 1)
Quarter: 2024Q3

REPORT INFORMATION
  Report Type: Spontaneous
  Country: US (occurrence: US)
  Receive Date: 20240715
  Receipt Date: 20240715
  Transmission Date: 20241017
  Serious: Yes (Hospitalization)
  Sender: Unknown Manufacturer
  Company Number: US-862174955-ML2024-03880

PATIENT
  Age: 44 Year
  Sex: Male

DRUGS (1)
  1. TRANEXAMIC ACID [Suspect]
     Active Substance: TRANEXAMIC ACID
     Indication: Haemorrhage
     Dosage: APPLIED LOCALLY TO AREAS OF BLEEDING

REACTIONS (9)
  - Clonus [Recovered/Resolved]
  - Pyrexia [Recovered/Resolved]
  - Tachycardia [Unknown]
  - Hypertension [Unknown]
  - Muscle rigidity [Unknown]
  - Agitation [Unknown]
  - Disorientation [Unknown]
  - Hyperreflexia [Recovered/Resolved]
  - Tremor [Unknown]
